FAERS Safety Report 5947327-X (Version None)
Quarter: 2008Q4

REPORT INFORMATION
  Report Type: 
  Country: None (occurrence: None)
  Receive Date: 20081110
  Receipt Date: 20081031
  Transmission Date: 20090506
  Serious: Yes (Other)
  Sender: FDA-Public Use
  Company Number: FI-PFIZER INC-2008083193

PATIENT
  Sex: Male

DRUGS (1)
  1. CHAMPIX [Suspect]
     Indication: SMOKING CESSATION THERAPY
     Route: 048
     Dates: start: 20080807, end: 20080827

REACTIONS (8)
  - DEPRESSION [None]
  - DYSGEUSIA [None]
  - HALLUCINATION [None]
  - INTENTIONAL SELF-INJURY [None]
  - NIGHTMARE [None]
  - PAROSMIA [None]
  - SPEECH DISORDER [None]
  - THINKING ABNORMAL [None]
